FAERS Safety Report 14120187 (Version 1)
Quarter: 2017Q4

REPORT INFORMATION
  Report Type: Spontaneous
  Country: US (occurrence: US)
  Receive Date: 20171024
  Receipt Date: 20171024
  Transmission Date: 20180321
  Serious: Yes (Hospitalization)
  Sender: FDA-Public Use
  Company Number: None

PATIENT
  Age: 75 Year
  Sex: Female
  Weight: 72 kg

DRUGS (8)
  1. PRALUENT [Concomitant]
     Active Substance: ALIROCUMAB
  2. SUCC [Concomitant]
  3. COQ10 [Concomitant]
     Active Substance: UBIDECARENONE
  4. APIXABAN [Suspect]
     Active Substance: APIXABAN
     Indication: PRODUCT USED FOR UNKNOWN INDICATION
  5. VITAMIN D3 [Concomitant]
     Active Substance: CHOLECALCIFEROL
  6. METOPROLOL. [Concomitant]
     Active Substance: METOPROLOL
  7. VITAMIN E [Concomitant]
     Active Substance: .ALPHA.-TOCOPHEROL
  8. VIT B [Concomitant]
     Active Substance: VITAMIN B

REACTIONS (3)
  - Thrombosis [None]
  - Ocular hyperaemia [None]
  - Pneumonia [None]

NARRATIVE: CASE EVENT DATE: 20170517
